FAERS Safety Report 17785762 (Version 11)
Quarter: 2025Q1

REPORT INFORMATION
  Report Type: Report from Study
  Country: US (occurrence: US)
  Receive Date: 20200514
  Receipt Date: 20250225
  Transmission Date: 20250409
  Serious: Yes (Other)
  Sender: TAKEDA
  Company Number: US-SHIRE-US202016257

PATIENT
  Age: 18 Year
  Sex: Male
  Weight: 63.49 kg

DRUGS (19)
  1. HUMAN IMMUNOGLOBULIN G [Suspect]
     Active Substance: HUMAN IMMUNOGLOBULIN G
     Indication: Immunodeficiency common variable
     Dosage: 8 GRAM, 1/WEEK
     Dates: start: 20170624
  2. HUMAN IMMUNOGLOBULIN G [Suspect]
     Active Substance: HUMAN IMMUNOGLOBULIN G
     Indication: Primary immunodeficiency syndrome
  3. DIPHENHYDRAMINE [Concomitant]
     Active Substance: DIPHENHYDRAMINE
  4. EPINEPHRINE [Concomitant]
     Active Substance: EPINEPHRINE
  5. SINGULAIR [Concomitant]
     Active Substance: MONTELUKAST SODIUM
  6. MELATONIN [Concomitant]
     Active Substance: MELATONIN
  7. IMITREX [Concomitant]
     Active Substance: SUMATRIPTAN SUCCINATE
  8. ACETAMINOPHEN [Concomitant]
     Active Substance: ACETAMINOPHEN
  9. COENZYME Q10 [Concomitant]
     Active Substance: DIETARY SUPPLEMENT\UBIDECARENONE
  10. HERBALS\TURMERIC [Concomitant]
     Active Substance: HERBALS\TURMERIC
  11. GABAPENTIN [Concomitant]
     Active Substance: GABAPENTIN
  12. VITAMIN D3 [Concomitant]
     Active Substance: CHOLECALCIFEROL
  13. LEVOCARNITINE [Concomitant]
     Active Substance: LEVOCARNITINE
  14. FISH OIL [Concomitant]
     Active Substance: FISH OIL
  15. VOLTAREN [Concomitant]
     Active Substance: DICLOFENAC SODIUM
  16. MOBIC [Concomitant]
     Active Substance: MELOXICAM
  17. ZETONNA [Concomitant]
     Active Substance: CICLESONIDE
  18. VITAMIN D NOS [Concomitant]
     Active Substance: CHOLECALCIFEROL\ERGOCALCIFEROL
  19. DIPHENHYDRAMINE HYDROCHLORIDE [Concomitant]
     Active Substance: DIPHENHYDRAMINE HYDROCHLORIDE

REACTIONS (12)
  - Pneumonia [Recovering/Resolving]
  - Infection [Unknown]
  - Ear infection [Recovering/Resolving]
  - COVID-19 [Unknown]
  - Device infusion issue [Unknown]
  - Incorrect dose administered [Unknown]
  - Insurance issue [Unknown]
  - Product use issue [Unknown]
  - Sensitive skin [Unknown]
  - Sinusitis [Recovered/Resolved]
  - Asthma [Unknown]
  - Somnolence [Unknown]

NARRATIVE: CASE EVENT DATE: 20220721
